FAERS Safety Report 10014699 (Version 1)
Quarter: 2014Q1

REPORT INFORMATION
  Report Type: Spontaneous
  Country: US (occurrence: US)
  Receive Date: 20140317
  Receipt Date: 20140317
  Transmission Date: 20141002
  Serious: Yes (Hospitalization)
  Sender: FDA-Public Use
  Company Number: US-BAYER-2014-037256

PATIENT
  Age: 40 Year
  Sex: Female
  Weight: 129 kg

DRUGS (7)
  1. YAZ [Suspect]
  2. PROVERA [Concomitant]
     Dosage: 10 MG, QD
     Dates: start: 20090303
  3. ULTRAM [Concomitant]
  4. ZOLOFT [Concomitant]
     Indication: DEPRESSION
  5. DETROL [Concomitant]
  6. VISTARIL [Concomitant]
  7. MOTRIN [Concomitant]

REACTIONS (2)
  - Deep vein thrombosis [None]
  - Thrombophlebitis superficial [None]
